FAERS Safety Report 17678291 (Version 2)
Quarter: 2020Q2

REPORT INFORMATION
  Report Type: Spontaneous
  Country: US (occurrence: US)
  Receive Date: 20200417
  Receipt Date: 20200605
  Transmission Date: 20200714
  Serious: No
  Sender: FDA-Public Use
  Company Number: US-ASTRAZENECA-2020SE49990

PATIENT
  Sex: Female
  Weight: 98.9 kg

DRUGS (4)
  1. PERCOCET [Concomitant]
     Active Substance: ACETAMINOPHEN\OXYCODONE HYDROCHLORIDE
     Indication: BACK DISORDER
  2. METFORMIN [Concomitant]
     Active Substance: METFORMIN HYDROCHLORIDE
     Indication: BLOOD GLUCOSE INCREASED
  3. BYDUREON [Suspect]
     Active Substance: EXENATIDE
     Indication: DIABETES MELLITUS
     Route: 058
     Dates: start: 202001
  4. XANAX [Concomitant]
     Active Substance: ALPRAZOLAM
     Indication: NERVE INJURY

REACTIONS (7)
  - Weight decreased [Unknown]
  - Device issue [Unknown]
  - Hypoacusis [Unknown]
  - Weight increased [Unknown]
  - Retching [Unknown]
  - Injection site haemorrhage [Unknown]
  - Eye complication associated with device [Unknown]
